FAERS Safety Report 14749936 (Version 3)
Quarter: 2018Q2

REPORT INFORMATION
  Report Type: Spontaneous
  Country: US (occurrence: US)
  Receive Date: 20180412
  Receipt Date: 20180531
  Transmission Date: 20180711
  Serious: Yes (Death, Hospitalization, Other)
  Sender: FDA-Public Use
  Company Number: US-B.I. PHARMACEUTICALS,INC./RIDGEFIELD-2018-BI-019912

PATIENT
  Sex: Male

DRUGS (1)
  1. PRADAXA [Suspect]
     Active Substance: DABIGATRAN ETEXILATE MESYLATE
     Indication: PRODUCT USED FOR UNKNOWN INDICATION
     Dosage: STRENGTH: 150 MG; ADMINISTRATION CORRECT? NR(NOT REPORTED); ACTION TAKEN: NOT REPORTED
     Route: 048

REACTIONS (5)
  - Cardiac failure [Fatal]
  - Dyspnoea [Unknown]
  - Kidney infection [Unknown]
  - Myocardial infarction [Unknown]
  - Renal failure [Unknown]
